FAERS Safety Report 14247527 (Version 5)
Quarter: 2020Q3

REPORT INFORMATION
  Report Type: Report from Study
  Country: US (occurrence: US)
  Receive Date: 20171204
  Receipt Date: 20180601
  Transmission Date: 20201105
  Serious: Yes (Hospitalization)
  Sender: FDA-Public Use
  Company Number: US-JNJFOC-20170918153

PATIENT
  Age: 64 Year
  Sex: Female
  Weight: 71 kg

DRUGS (15)
  1. DARATUMUMAB [Suspect]
     Active Substance: DARATUMUMAB
     Indication: PLASMA CELL MYELOMA
     Dosage: C1D1 ON 31?AUG?2017
     Route: 042
     Dates: start: 20170831, end: 20170907
  2. ATIVAN [Concomitant]
     Active Substance: LORAZEPAM
     Indication: VOMITING
     Dosage: PRN
     Route: 048
  3. BORTEZOMIB. [Suspect]
     Active Substance: BORTEZOMIB
     Indication: PLASMA CELL MYELOMA
     Route: 058
  4. DIPHENHDRAMINE [Concomitant]
     Active Substance: DIPHENHYDRAMINE
     Dosage: IN NS
     Route: 042
     Dates: start: 20170831, end: 20170907
  5. NORVASC [Concomitant]
     Active Substance: AMLODIPINE BESYLATE
  6. SYNTHROID [Concomitant]
     Active Substance: LEVOTHYROXINE SODIUM
     Route: 048
  7. PANTOPRAZOLE [Concomitant]
     Active Substance: PANTOPRAZOLE
     Route: 048
  8. DARATUMUMAB [Suspect]
     Active Substance: DARATUMUMAB
     Indication: PLASMA CELL MYELOMA
     Dosage: C1D1 ON 31?AUG?2017
     Route: 042
     Dates: start: 20170922, end: 20171006
  9. DARATUMUMAB [Suspect]
     Active Substance: DARATUMUMAB
     Indication: PLASMA CELL MYELOMA
     Dosage: C1D1 ON 31?AUG?2017
     Route: 042
     Dates: start: 20171013
  10. CARAFATE [Concomitant]
     Active Substance: SUCRALFATE
     Dosage: 1G/10ML
  11. ACYCLOVIR. [Concomitant]
     Active Substance: ACYCLOVIR
     Route: 048
  12. ASPIRIN. [Concomitant]
     Active Substance: ASPIRIN
     Dosage: DELAYED RELEASE
     Route: 048
  13. VOLTAREN [Concomitant]
     Active Substance: DICLOFENAC SODIUM
     Indication: PAIN
     Dosage: 1% TOPICAL GEL PRN
     Route: 061
  14. DIPHENHDRAMINE [Concomitant]
     Active Substance: DIPHENHYDRAMINE
     Dosage: IN NS
     Route: 042
     Dates: start: 20170922
  15. ATIVAN [Concomitant]
     Active Substance: LORAZEPAM
     Indication: NAUSEA
     Dosage: PRN
     Route: 048

REACTIONS (1)
  - Hyponatraemia [Recovered/Resolved with Sequelae]

NARRATIVE: CASE EVENT DATE: 20170913
